FAERS Safety Report 4300363-1 (Version None)
Quarter: 2004Q1

REPORT INFORMATION
  Report Type: 
  Country: None (occurrence: None)
  Receive Date: 20040220
  Receipt Date: 20040218
  Transmission Date: 20041129
  Serious: Yes (Hospitalization)
  Sender: FDA-Public Use
  Company Number: US-GLAXOSMITHKLINE-A0498739A

PATIENT
  Age: 51 Year
  Sex: Female

DRUGS (2)
  1. ADVAIR DISKUS 100/50 [Suspect]
     Indication: ASTHMA
     Dosage: 1PUFF TWICE PER DAY
     Route: 055
     Dates: start: 20010101
  2. THEO-DUR [Concomitant]

REACTIONS (5)
  - BRONCHITIS [None]
  - CANDIDIASIS [None]
  - HOARSENESS [None]
  - LARYNGEAL INJURY [None]
  - RESPIRATORY MONILIASIS [None]
